FAERS Safety Report 9988869 (Version 2)
Quarter: 2014Q1

REPORT INFORMATION
  Report Type: Spontaneous
  Country: IT (occurrence: IT)
  Receive Date: 20140310
  Receipt Date: 20140310
  Transmission Date: 20141002
  Serious: Yes (Other)
  Sender: FDA-Public Use
  Company Number: IT-ACCORD-016099

PATIENT
  Age: 37 Year
  Sex: Female
  Weight: 68 kg

DRUGS (10)
  1. IRINOTECAN [Suspect]
     Indication: RECTAL ADENOCARCINOMA
     Dosage: 307 MG IN 1ST CYCLE, 230 MG IN NEXT CYCLES.
     Route: 042
     Dates: start: 20120720, end: 20130211
  2. FLUOROURACIL [Suspect]
     Indication: RECTAL ADENOCARCINOMA
     Dosage: 4789 MG 1ST CYCLE,3500 MG IN NEXT CYCLES
     Route: 042
     Dates: start: 20120720, end: 20130211
  3. AVASTIN [Suspect]
     Indication: METASTASES TO PERITONEUM
     Route: 042
     Dates: start: 20130527, end: 20130906
  4. ELOXATIN [Suspect]
     Indication: METASTASES TO PERITONEUM
     Route: 042
     Dates: start: 20130527, end: 20130906
  5. ERBITUX [Suspect]
     Indication: RECTAL ADENOCARCINOMA
     Dosage: 1ST CYCLE;640 MG IN 2ND AND 3RD CYCLE;635 MG 5TH CYCLE.
     Route: 042
     Dates: start: 20120720, end: 20130211
  6. EMEND [Concomitant]
  7. CALCIUM LEVOFOLINATE [Concomitant]
     Route: 042
     Dates: start: 20120720, end: 20120912
  8. PERFALGAN [Concomitant]
  9. EUTIROX [Concomitant]
     Indication: AUTOIMMUNE THYROIDITIS
     Dosage: ^25 MG TABLETS^ 50 TABLETS
     Route: 048
  10. ALOXI [Concomitant]

REACTIONS (13)
  - Nausea [Not Recovered/Not Resolved]
  - Diarrhoea [Not Recovered/Not Resolved]
  - Thrombocytopenia [Unknown]
  - Infusion related reaction [Recovered/Resolved]
  - Erythropenia [Recovered/Resolved]
  - Anaemia [Recovered/Resolved]
  - Hyposideraemia [Recovered/Resolved]
  - Influenza [Recovered/Resolved]
  - Tonsillitis [Recovered/Resolved]
  - Leukopenia [Recovered/Resolved]
  - Neutropenia [Recovered/Resolved]
  - Papule [Recovered/Resolved]
  - Rash [Not Recovered/Not Resolved]
